FAERS Safety Report 6898385-X (Version None)
Quarter: 2010Q3

REPORT INFORMATION
  Report Type: 
  Country: None (occurrence: None)
  Receive Date: 20100802
  Receipt Date: 20071005
  Transmission Date: 20110219
  Serious: No
  Sender: FDA-Public Use
  Company Number: US-PFIZER INC-2007067796

PATIENT
  Sex: Female
  Weight: 86.4 kg

DRUGS (6)
  1. LYRICA [Suspect]
     Indication: PARTIAL SEIZURES
     Dates: start: 20070812
  2. LYRICA [Suspect]
     Indication: ANXIETY
  3. ALPRAZOLAM [Suspect]
     Indication: ANXIETY
     Dates: start: 20070101
  4. TEGRETOL [Concomitant]
  5. VITAMIN B6 [Concomitant]
  6. VITAMIN B-12 [Concomitant]

REACTIONS (2)
  - CHROMATURIA [None]
  - DRUG INEFFECTIVE [None]
